FAERS Safety Report 17889987 (Version 2)
Quarter: 2020Q2

REPORT INFORMATION
  Report Type: Spontaneous
  Country: JP (occurrence: JP)
  Receive Date: 20200612
  Receipt Date: 20200619
  Transmission Date: 20200714
  Serious: Yes (Hospitalization)
  Sender: FDA-Public Use
  Company Number: JP-JNJFOC-20200609499

PATIENT

DRUGS (1)
  1. DUROTEP [Suspect]
     Active Substance: FENTANYL
     Indication: PAIN
     Dosage: 50MCG/HR
     Route: 062

REACTIONS (3)
  - Hospitalisation [Unknown]
  - Off label use [Unknown]
  - Inappropriate schedule of product administration [Unknown]
